FAERS Safety Report 5957614-7 (Version None)
Quarter: 2008Q4

REPORT INFORMATION
  Report Type: 
  Country: None (occurrence: None)
  Receive Date: 20081110
  Receipt Date: 20081012
  Transmission Date: 20090506
  Serious: Yes (Death)
  Sender: FDA-Public Use
  Company Number: CHPA2008US18388

PATIENT
  Age: 53 Year
  Sex: Male

DRUGS (5)
  1. CAFFEINE CITRATE [Suspect]
     Dosage: ORAL
     Route: 048
  2. EPHEDRINE SUL CAP [Suspect]
     Dosage: ORAL
     Route: 048
  3. TRAZODONE HCL [Suspect]
     Dosage: ORAL
     Route: 048
  4. CLONAZEPAM [Suspect]
     Dosage: ORAL
     Route: 048
  5. FLUVOXAMINE MALEATE [Suspect]
     Dosage: ORAL
     Route: 048

REACTIONS (2)
  - COMPLETED SUICIDE [None]
  - INCORRECT DOSE ADMINISTERED [None]
